FAERS Safety Report 5020006-1 (Version None)
Quarter: 2006Q2

REPORT INFORMATION
  Report Type: 
  Country: None (occurrence: None)
  Receive Date: 20060601
  Receipt Date: 20060517
  Transmission Date: 20061013
  Serious: Yes (Hospitalization)
  Sender: FDA-Public Use
  Company Number: 8016614

PATIENT
  Age: 30 Year
  Sex: Female
  Weight: 51 kg

DRUGS (2)
  1. KEPPRA [Suspect]
     Indication: EPILEPSY
     Dosage: 500 MG 2/D PO
     Route: 048
     Dates: start: 20050801, end: 20050814
  2. KEPPRA [Suspect]
     Indication: EPILEPSY
     Dosage: 1500 MG PO
     Route: 048
     Dates: start: 20050815, end: 20050818

REACTIONS (6)
  - AURA [None]
  - CONVULSION [None]
  - GRAND MAL CONVULSION [None]
  - HEMIPLEGIA [None]
  - STATUS EPILEPTICUS [None]
  - TREMOR [None]
